FAERS Safety Report 5582702-7 (Version None)
Quarter: 2008Q1

REPORT INFORMATION
  Report Type: 
  Country: None (occurrence: None)
  Receive Date: 20080107
  Receipt Date: 20080103
  Transmission Date: 20080703
  Serious: Yes (Life-Threatening)
  Sender: FDA-Public Use
  Company Number: FR-BRISTOL-MYERS SQUIBB COMPANY-14000012

PATIENT
  Age: 49 Year
  Sex: Female
  Weight: 101 kg

DRUGS (17)
  1. CORGARD [Suspect]
     Route: 048
     Dates: start: 20071022, end: 20070101
  2. ZITHROMAX [Suspect]
     Indication: BRONCHITIS
     Route: 048
     Dates: start: 20071020, end: 20071022
  3. SELOKEN [Suspect]
     Dosage: TABLET 100MG.
     Route: 048
     Dates: end: 20071022
  4. TERBUTALINE SULFATE [Concomitant]
     Indication: BRONCHITIS
     Route: 065
     Dates: start: 20071001
  5. ATROVENT [Concomitant]
     Indication: BRONCHITIS
     Route: 055
     Dates: start: 20071001
  6. VASTAREL [Concomitant]
     Route: 065
  7. DEROXAT [Concomitant]
     Route: 065
  8. LORAZEPAM [Concomitant]
     Route: 065
  9. ELISOR [Concomitant]
     Route: 065
  10. NOCTRAN [Concomitant]
     Route: 065
  11. FORLAX [Concomitant]
     Route: 065
  12. DIANTALVIC [Concomitant]
     Route: 065
  13. LYRICA [Concomitant]
     Route: 065
  14. GAVISCON [Concomitant]
     Route: 065
  15. PLAVIX [Concomitant]
     Route: 048
  16. PRAXILENE [Concomitant]
     Route: 065
  17. SPASFON-LYOC [Concomitant]
     Route: 048

REACTIONS (3)
  - ELECTROCARDIOGRAM QT PROLONGED [None]
  - TORSADE DE POINTES [None]
  - VENTRICULAR TACHYCARDIA [None]
